FAERS Safety Report 9934597 (Version 1)
Quarter: 2014Q1

REPORT INFORMATION
  Report Type: Spontaneous
  Country: CA (occurrence: CA)
  Receive Date: 20140228
  Receipt Date: 20140228
  Transmission Date: 20141002
  Serious: Yes (Hospitalization)
  Sender: FDA-Public Use
  Company Number: CA-NOVOPROD-400855

PATIENT
  Age: 53 Year
  Sex: Male
  Weight: 91 kg

DRUGS (12)
  1. LEVEMIR PENFILL [Suspect]
     Indication: PRODUCT USED FOR UNKNOWN INDICATION
     Dosage: UNK
     Route: 058
  2. AVANDAMET [Suspect]
     Indication: PRODUCT USED FOR UNKNOWN INDICATION
     Dosage: UNK
  3. GLICLAZIDE [Suspect]
     Indication: PRODUCT USED FOR UNKNOWN INDICATION
     Dosage: UNK (EXTENDED RELEASE TABLET)
  4. JANUVIA [Suspect]
     Indication: PRODUCT USED FOR UNKNOWN INDICATION
     Dosage: UNK
  5. NEXAVAR [Suspect]
     Indication: PRODUCT USED FOR UNKNOWN INDICATION
     Dosage: 400 MG, BID
     Route: 048
  6. METOPROLOL [Suspect]
     Indication: PRODUCT USED FOR UNKNOWN INDICATION
     Dosage: UNK
  7. SUTENT [Suspect]
     Indication: PRODUCT USED FOR UNKNOWN INDICATION
     Dosage: 50 MG, QD
     Route: 048
  8. ASA [Concomitant]
     Dosage: UNK
  9. AVALIDE [Concomitant]
     Dosage: UNK
  10. DIAMICRON [Concomitant]
     Dosage: UNK
  11. LISINOPRIL [Concomitant]
     Dosage: UNK
  12. CADUET [Concomitant]
     Dosage: UNK

REACTIONS (3)
  - Metabolic acidosis [Unknown]
  - Vomiting projectile [Unknown]
  - Hypoglycaemia [Unknown]
